FAERS Safety Report 16106390 (Version 2)
Quarter: 2019Q2

REPORT INFORMATION
  Report Type: Spontaneous
  Country: FR (occurrence: FR)
  Receive Date: 20190322
  Receipt Date: 20190412
  Transmission Date: 20190711
  Serious: Yes (Hospitalization)
  Sender: FDA-Public Use
  Company Number: FR-009507513-1903FRA007538

PATIENT
  Age: 77 Year
  Sex: Male

DRUGS (11)
  1. DIPROSONE [Suspect]
     Active Substance: BETAMETHASONE DIPROPIONATE
     Indication: SKIN LESION
     Dosage: UNK, UNK (UNKNOWN/D)
     Route: 061
     Dates: start: 20051123
  2. NEOMYCIN SULFATE. [Suspect]
     Active Substance: NEOMYCIN SULFATE
     Indication: SKIN LESION
     Dosage: UNKNOWN/D
     Route: 061
     Dates: start: 20051123
  3. SOLUPRED (PREDNISOLONE SODIUM METAZOATE) [Suspect]
     Active Substance: PREDNISOLONE SODIUM METAZOATE
     Indication: PRODUCT USED FOR UNKNOWN INDICATION
     Dosage: UNKNOWN/D
     Route: 048
     Dates: start: 20051201, end: 20051228
  4. LAMISIL [Suspect]
     Active Substance: TERBINAFINE HYDROCHLORIDE
     Indication: DERMATOPHYTOSIS OF NAIL
  5. KESTINE [Concomitant]
     Active Substance: EBASTINE
     Indication: PRODUCT USED FOR UNKNOWN INDICATION
     Dosage: UNKNOWN/D
     Route: 048
  6. KESTINE [Concomitant]
     Active Substance: EBASTINE
     Dosage: UNK
     Route: 048
  7. LAMISIL [Suspect]
     Active Substance: TERBINAFINE HYDROCHLORIDE
     Indication: DERMATOPHYTOSIS OF NAIL
     Dosage: UNK, UNK
     Route: 061
     Dates: start: 20051109, end: 20051123
  8. EFFERALGAN [Concomitant]
     Active Substance: ACETAMINOPHEN
     Indication: PRODUCT USED FOR UNKNOWN INDICATION
     Dosage: UNK, PRN
     Route: 065
  9. SOLUPRED (PREDNISOLONE SODIUM METAZOATE) [Suspect]
     Active Substance: PREDNISOLONE SODIUM METAZOATE
     Dosage: UNK, UNKNOWN/D
     Route: 048
     Dates: start: 20051201, end: 20051228
  10. GURONSAN (ASCORBIC ACID (+) CAFFEINE (+) GLUCURONAMIDE) [Suspect]
     Active Substance: ASCORBIC ACID\CAFFEINE\GLUCURONAMIDE
     Indication: PRODUCT USED FOR UNKNOWN INDICATION
     Dosage: UNK, PRN
     Route: 048
  11. LOCOID [Suspect]
     Active Substance: HYDROCORTISONE BUTYRATE
     Indication: SKIN LESION
     Dosage: UNK, UNK
     Route: 061
     Dates: start: 20051109, end: 20051123

REACTIONS (10)
  - Toxic skin eruption [Unknown]
  - Skin discolouration [Recovering/Resolving]
  - Erythrodermic psoriasis [Not Recovered/Not Resolved]
  - Skin exfoliation [Recovering/Resolving]
  - Palmoplantar keratoderma [Not Recovered/Not Resolved]
  - Condition aggravated [Unknown]
  - Vasculitis [Unknown]
  - Dermatitis psoriasiform [Unknown]
  - Rash [Unknown]
  - Parakeratosis [Unknown]

NARRATIVE: CASE EVENT DATE: 2005
